FAERS Safety Report 7753770-9 (Version None)
Quarter: 2011Q3

REPORT INFORMATION
  Report Type: 
  Country: None (occurrence: None)
  Receive Date: 20110915
  Receipt Date: 20110906
  Transmission Date: 20111222
  Serious: Yes (Hospitalization)
  Sender: FDA-Public Use
  Company Number: US-BAYER-201031213NA

PATIENT
  Age: 38 Year
  Sex: Female
  Weight: 83.447 kg

DRUGS (7)
  1. SIMVASTATIN [Concomitant]
     Indication: BLOOD CHOLESTEROL ABNORMAL
     Dosage: 40 MG, QD
     Route: 048
     Dates: start: 20081215
  2. LEXAPRO [Concomitant]
     Dosage: 20 MG, QD
     Route: 048
  3. YAZ [Suspect]
     Indication: PREMENSTRUAL SYNDROME
  4. NAPROXEN [Concomitant]
     Indication: ARTHRALGIA
     Dosage: 500 MG, UNK
     Route: 055
  5. YAZ [Suspect]
     Indication: PRODUCT USED FOR UNKNOWN INDICATION
     Dosage: UNK
     Route: 048
     Dates: start: 20070101, end: 20090507
  6. FLONASE [Concomitant]
     Indication: MULTIPLE ALLERGIES
  7. SYNTHROID [Concomitant]
     Indication: HYPOTHYROIDISM
     Dosage: 75 MCG/24HR, UNK
     Route: 048

REACTIONS (2)
  - PULMONARY EMBOLISM [None]
  - PLEURAL EFFUSION [None]
